FAERS Safety Report 7127351-4 (Version None)
Quarter: 2010Q4

REPORT INFORMATION
  Report Type: 
  Country: None (occurrence: None)
  Receive Date: 20101129
  Receipt Date: 20100424
  Transmission Date: 20110411
  Serious: No
  Sender: FDA-Public Use
  Company Number: US-PFIZER INC-2010052610

PATIENT
  Sex: Male
  Weight: 77.098 kg

DRUGS (1)
  1. VIAGRA [Suspect]
     Indication: ERECTILE DYSFUNCTION
     Dosage: 25 MG, 2X/DAY
     Route: 048
     Dates: start: 20091201

REACTIONS (1)
  - EJACULATION DISORDER [None]
